FAERS Safety Report 9828007 (Version 1)
Quarter: 2014Q1

REPORT INFORMATION
  Report Type: Spontaneous
  Country: US (occurrence: None)
  Receive Date: 20140116
  Receipt Date: 20140116
  Transmission Date: 20141002
  Serious: No
  Sender: FDA-Public Use
  Company Number: None

PATIENT
  Age: 62 Year
  Sex: Male
  Weight: 148 kg

DRUGS (1)
  1. PROPOFOL [Suspect]
     Indication: SURGERY
     Dates: start: 20130903, end: 20130903

REACTIONS (3)
  - Hypotension [None]
  - Oxygen saturation decreased [None]
  - Vascular resistance systemic decreased [None]
